FAERS Safety Report 5528070-8 (Version None)
Quarter: 2007Q4

REPORT INFORMATION
  Report Type: 
  Country: None (occurrence: None)
  Receive Date: 20071126
  Receipt Date: 20071126
  Transmission Date: 20080405
  Serious: Yes (Disabling)
  Sender: FDA-Public Use
  Company Number: None

PATIENT
  Age: 39 Year
  Sex: Male
  Weight: 127.0072 kg

DRUGS (1)
  1. CHANTIX [Suspect]
     Indication: NICOTINE DEPENDENCE
     Dosage: 1 MG 2 TWICE A DAY PO
     Route: 048
     Dates: start: 20070622, end: 20070828

REACTIONS (3)
  - APATHY [None]
  - DEPRESSION [None]
  - DIABETES MELLITUS [None]
